FAERS Safety Report 12981912 (Version 1)
Quarter: 2016Q4

REPORT INFORMATION
  Report Type: Spontaneous
  Country: US (occurrence: US)
  Receive Date: 20161128
  Receipt Date: 20161128
  Transmission Date: 20170207
  Serious: No
  Sender: FDA-Public Use
  Company Number: None

PATIENT
  Age: 54 Year
  Sex: Female

DRUGS (1)
  1. HUMIRA [Suspect]
     Active Substance: ADALIMUMAB
     Indication: PRODUCT USED FOR UNKNOWN INDICATION
     Route: 058
     Dates: start: 20161011, end: 20161105

REACTIONS (4)
  - Palpitations [None]
  - Hypoaesthesia oral [None]
  - Confusional state [None]
  - Loss of consciousness [None]

NARRATIVE: CASE EVENT DATE: 20161105
